FAERS Safety Report 13334710 (Version 1)
Quarter: 2017Q1

REPORT INFORMATION
  Report Type: Spontaneous
  Country: TR (occurrence: TR)
  Receive Date: 20170314
  Receipt Date: 20170314
  Transmission Date: 20170428
  Serious: Yes (Death, Hospitalization)
  Sender: FDA-Public Use
  Company Number: TR-INGENUS PHARMACEUTICALS NJ, LLC-ING201703-000117

PATIENT
  Age: 18 Year
  Sex: Female

DRUGS (2)
  1. PROBENECID AND COLCHICINE [Suspect]
     Active Substance: COLCHICINE\PROBENECID
     Indication: ABDOMINAL PAIN
  2. PROBENECID AND COLCHICINE [Suspect]
     Active Substance: COLCHICINE\PROBENECID
     Indication: FAMILIAL MEDITERRANEAN FEVER

REACTIONS (9)
  - Bone marrow failure [Unknown]
  - Rhabdomyolysis [Fatal]
  - Loss of consciousness [Unknown]
  - Muscle atrophy [Unknown]
  - Product use issue [Unknown]
  - Toxicity to various agents [Fatal]
  - Hypotension [Fatal]
  - Intentional overdose [Fatal]
  - Dehydration [Unknown]
